FAERS Safety Report 18062548 (Version 2)
Quarter: 2020Q3

REPORT INFORMATION
  Report Type: Spontaneous
  Country: JP (occurrence: JP)
  Receive Date: 20200724
  Receipt Date: 20200803
  Transmission Date: 20201103
  Serious: Yes (Death, Other)
  Sender: FDA-Public Use
  Company Number: JP-ASTELLAS-2019JP027130

PATIENT
  Age: 58 Year
  Sex: Female

DRUGS (2)
  1. FUNGUARD [Suspect]
     Active Substance: MICAFUNGIN SODIUM
     Indication: PROPHYLAXIS
     Dosage: 50 MG/DAY, UNKNOWN FREQ.
     Route: 041
     Dates: start: 20191108, end: 20191211
  2. XOSPATA [Suspect]
     Active Substance: GILTERITINIB
     Indication: ACUTE MYELOID LEUKAEMIA RECURRENT
     Route: 048
     Dates: start: 20191108, end: 202006

REACTIONS (5)
  - Acute myeloid leukaemia [Fatal]
  - Aspartate aminotransferase increased [Recovering/Resolving]
  - Off label use [Unknown]
  - Sinus tachycardia [Recovering/Resolving]
  - Alanine aminotransferase increased [Recovering/Resolving]

NARRATIVE: CASE EVENT DATE: 20191108
